FAERS Safety Report 12423011 (Version 1)
Quarter: 2016Q2

REPORT INFORMATION
  Report Type: Spontaneous
  Country: US (occurrence: US)
  Receive Date: 20160601
  Receipt Date: 20160601
  Transmission Date: 20160815
  Serious: No
  Sender: FDA-Public Use
  Company Number: US-PFIZER INC-2016278927

PATIENT
  Age: 39 Year
  Sex: Male

DRUGS (2)
  1. NEOMYCIN SULFATE. [Suspect]
     Active Substance: NEOMYCIN SULFATE
     Indication: SMALL INTESTINAL BACTERIAL OVERGROWTH
     Dosage: 500 MG, UNK
     Route: 048
     Dates: start: 20160505
  2. RIFAXIMIN [Suspect]
     Active Substance: RIFAXIMIN
     Indication: SMALL INTESTINAL BACTERIAL OVERGROWTH
     Dosage: UNK

REACTIONS (1)
  - Drug ineffective [Unknown]
